FAERS Safety Report 8047863-9 (Version None)
Quarter: 2012Q1

REPORT INFORMATION
  Report Type: 
  Country: None (occurrence: None)
  Receive Date: 20120116
  Receipt Date: 20120104
  Transmission Date: 20120608
  Serious: Yes (Death)
  Sender: FDA-Public Use
  Company Number: US-COVIDIEN/TYCO HEALTHCARE/MALLINCKRODT-T201200045

PATIENT
  Sex: Female

DRUGS (5)
  1. TEMAZEPAM [Suspect]
     Dosage: UNK
  2. DIAZEPAM [Suspect]
     Dosage: UNK
  3. HYDROCODONE BITARTRATE [Suspect]
     Dosage: UNK
  4. OXAZEPAM [Suspect]
     Dosage: UNK
  5. FENTANYL-100 [Suspect]
     Dosage: UNK

REACTIONS (2)
  - MEDICATION ERROR [None]
  - CARDIO-RESPIRATORY ARREST [None]
